FAERS Safety Report 14693539 (Version 1)
Quarter: 2018Q1

REPORT INFORMATION
  Report Type: Spontaneous
  Country: US (occurrence: US)
  Receive Date: 20180328
  Receipt Date: 20180328
  Transmission Date: 20180509
  Serious: Yes (Disabling)
  Sender: FDA-Public Use
  Company Number: None

PATIENT
  Age: 23 Year
  Sex: Female
  Weight: 93.89 kg

DRUGS (1)
  1. NEXPLANON [Suspect]
     Active Substance: ETONOGESTREL

REACTIONS (6)
  - Ovarian cyst [None]
  - Menstruation irregular [None]
  - Alopecia [None]
  - Insulin resistance [None]
  - Implant site pain [None]
  - Weight increased [None]

NARRATIVE: CASE EVENT DATE: 20170731
